FAERS Safety Report 6815201-2 (Version None)
Quarter: 2010Q3

REPORT INFORMATION
  Report Type: 
  Country: None (occurrence: None)
  Receive Date: 20100701
  Receipt Date: 20100701
  Transmission Date: 20110219
  Serious: Yes (Hospitalization)
  Sender: FDA-Public Use
  Company Number: None

PATIENT
  Age: 54 Year
  Sex: Male
  Weight: 148.8 kg

DRUGS (1)
  1. WARFARIN [Suspect]
     Indication: ATRIAL FIBRILLATION
     Dosage: 5 MG PM PO
     Route: 048
     Dates: start: 20091223, end: 20100621

REACTIONS (9)
  - CHEST PAIN [None]
  - DIARRHOEA [None]
  - DIVERTICULUM INTESTINAL [None]
  - DUODENAL ULCER [None]
  - DYSPNOEA [None]
  - FATIGUE [None]
  - GASTRIC HAEMORRHAGE [None]
  - GASTRITIS [None]
  - HAEMOGLOBIN DECREASED [None]
